FAERS Safety Report 7453488-6 (Version None)
Quarter: 2011Q2

REPORT INFORMATION
  Report Type: 
  Country: None (occurrence: None)
  Receive Date: 20110502
  Receipt Date: 20110201
  Transmission Date: 20111010
  Serious: No
  Sender: FDA-Public Use
  Company Number: US-ASTRAZENECA-2011SE05516

PATIENT
  Age: 50 Year
  Sex: Female
  Weight: 68.5 kg

DRUGS (1)
  1. NEXIUM [Suspect]
     Indication: GASTRITIS
     Route: 048
     Dates: start: 20110101, end: 20110201

REACTIONS (5)
  - EAR CONGESTION [None]
  - VISION BLURRED [None]
  - ANXIETY [None]
  - DYSPNOEA [None]
  - CHOKING SENSATION [None]
